FAERS Safety Report 10488457 (Version 1)
Quarter: 2014Q3

REPORT INFORMATION
  Report Type: Spontaneous
  Country: DE (occurrence: None)
  Receive Date: 20140912
  Receipt Date: 20140912
  Transmission Date: 20150326
  Serious: Yes (Hospitalization)
  Sender: FDA-Public Use
  Company Number: GAM-299-14-DE

PATIENT
  Age: 57 Year
  Sex: Female

DRUGS (18)
  1. PANTOPRAZOLE [Concomitant]
     Active Substance: PANTOPRAZOLE SODIUM
  2. IBANDRONIC ACID [Concomitant]
     Active Substance: IBANDRONIC ACID
  3. TIMOLOL [Concomitant]
     Active Substance: TIMOLOL
  4. ACETYLSALICYLIC ACID [Concomitant]
     Active Substance: ASPIRIN
  5. OCTAGAM IMMUNE GLOBULIN (HUMAN) [Suspect]
     Active Substance: HUMAN IMMUNOGLOBULIN G
     Indication: SECONDARY IMMUNODEFICIENCY
     Dosage: 10 G (2X 1/TOTAL)
     Route: 042
     Dates: start: 20140206, end: 20140907
  6. DEXAMETHASON [Concomitant]
     Active Substance: DEXAMETHASONE
  7. LEVOTHYROXINE [Concomitant]
     Active Substance: LEVOTHYROXINE
  8. RAMIPRIL. [Concomitant]
     Active Substance: RAMIPRIL
  9. METROPROLOL [Concomitant]
     Active Substance: METOPROLOL
  10. HYDROMORPHONE [Concomitant]
     Active Substance: HYDROMORPHONE
  11. DEXPANTHENOL. [Concomitant]
     Active Substance: DEXPANTHENOL
  12. ACICLOVIR [Concomitant]
     Active Substance: ACYCLOVIR
  13. NEOMYCIN [Concomitant]
     Active Substance: NEOMYCIN
  14. POLYMYXIN B [Concomitant]
     Active Substance: POLYMYXIN B
  15. FOLIC ACID. [Concomitant]
     Active Substance: FOLIC ACID
  16. CALCIUM CARBONATE. [Concomitant]
     Active Substance: CALCIUM CARBONATE
  17. OCTAGAM IMMUNE GLOBULIN (HUMAN) [Suspect]
     Active Substance: HUMAN IMMUNOGLOBULIN G
     Indication: SECONDARY IMMUNODEFICIENCY
     Dosage: 10 G (2X 1/TOTAL)
     Route: 042
     Dates: start: 20140605, end: 20140808
  18. EXSCITALOPRAM [Concomitant]

REACTIONS (9)
  - Vasospasm [None]
  - Blood cholesterol increased [None]
  - Subarachnoid haemorrhage [None]
  - Cerebral ischaemia [None]
  - Haematocrit decreased [None]
  - Low density lipoprotein increased [None]
  - Cerebral infarction [None]
  - Carotid artery aneurysm [None]
  - Haemoglobin decreased [None]

NARRATIVE: CASE EVENT DATE: 20140628
